FAERS Safety Report 5905110-5 (Version None)
Quarter: 2008Q3

REPORT INFORMATION
  Report Type: 
  Country: None (occurrence: None)
  Receive Date: 20080909
  Receipt Date: 20080211
  Transmission Date: 20090109
  Serious: Yes (Death)
  Sender: FDA-Public Use
  Company Number: 163-20785-07101761

PATIENT
  Age: 60 Year
  Sex: Male

DRUGS (2)
  1. THALOMID [Suspect]
     Indication: GLIOSARCOMA
     Dosage: 200-150MG, DAILY, ORAL ; 100 MG, 2 IN 1 D, ORAL
     Route: 048
     Dates: start: 20051026, end: 20060301
  2. THALOMID [Suspect]
     Indication: GLIOSARCOMA
     Dosage: 200-150MG, DAILY, ORAL ; 100 MG, 2 IN 1 D, ORAL
     Route: 048
     Dates: start: 20060417, end: 20070201

REACTIONS (1)
  - NEOPLASM PROGRESSION [None]
